FAERS Safety Report 10040426 (Version 1)
Quarter: 2014Q1

REPORT INFORMATION
  Report Type: Spontaneous
  Country: US (occurrence: US)
  Receive Date: 20140327
  Receipt Date: 20140327
  Transmission Date: 20141002
  Serious: Yes (Disabling)
  Sender: FDA-Public Use
  Company Number: US-BIOGENIDEC-2014BI028418

PATIENT
  Age: 49 Year
  Sex: Male

DRUGS (13)
  1. TYSABRI [Suspect]
     Indication: MULTIPLE SCLEROSIS
     Route: 042
     Dates: start: 20130129, end: 20131204
  2. AMANTADINE [Concomitant]
  3. BACLOFEN [Concomitant]
  4. DIAZEPAM [Concomitant]
  5. METHYLPHENIDATE [Concomitant]
  6. OXYBUTYNIN CHLORIDE [Concomitant]
  7. PHENYTOIN SODIUM EXTENDED [Concomitant]
  8. FLUOXETINE [Concomitant]
  9. LEVITRA [Concomitant]
  10. VESICARE [Concomitant]
  11. DIVALPROEX SODIUM [Concomitant]
  12. VITAMIN D3 [Concomitant]
  13. COD LIVER OIL [Concomitant]

REACTIONS (2)
  - Multiple sclerosis [Unknown]
  - Weight decreased [Unknown]
